FAERS Safety Report 4489032-5 (Version None)
Quarter: 2004Q4

REPORT INFORMATION
  Report Type: 
  Country: None (occurrence: None)
  Receive Date: 20041027
  Receipt Date: 20040929
  Transmission Date: 20050328
  Serious: Yes (Other)
  Sender: FDA-Public Use
  Company Number: TRP_0018_2004

PATIENT
  Age: 54 Year
  Sex: Male

DRUGS (14)
  1. RIBASPHERE [Suspect]
     Indication: HEPATITIS C
     Dosage: DF PO
     Route: 048
     Dates: start: 20040902
  2. PEG-INTRON [Suspect]
     Indication: HEPATITIS C
     Dosage: DF SC
     Route: 058
     Dates: start: 20040902
  3. ALLEGRA [Concomitant]
  4. ASPIRIN [Concomitant]
  5. ATENOLOL [Concomitant]
  6. GLYBURIDE [Concomitant]
  7. HYDROCHLOROTHIAZIDE [Concomitant]
  8. LISINOPRIL [Concomitant]
  9. METFORMIN HCL [Concomitant]
  10. MINIPRESS [Concomitant]
  11. NAPROXEN [Concomitant]
  12. RANITIDINE [Concomitant]
  13. VIAGRA [Concomitant]
  14. VITAMIN E [Concomitant]

REACTIONS (1)
  - CATARACT [None]
